FAERS Safety Report 7629950-X (Version None)
Quarter: 2011Q3

REPORT INFORMATION
  Report Type: 
  Country: None (occurrence: None)
  Receive Date: 20110722
  Receipt Date: 20110715
  Transmission Date: 20111222
  Serious: Yes (Other)
  Sender: FDA-Public Use
  Company Number: BR-BRISTOL-MYERS SQUIBB COMPANY-15912751

PATIENT
  Sex: Female

DRUGS (4)
  1. HYDROXOCOBALAMIN [Suspect]
     Indication: VITAMIN B12 DEFICIENCY
     Dosage: STARTED IN 2009, ALSO RECEIVED IN 2010, 18JUN'11, 14JUL2011
     Route: 030
     Dates: start: 20090101
  2. EUTHYROX [Concomitant]
     Dosage: STARTED 7 YEARS AGO AND ONGOING
  3. NIMESULIDE [Concomitant]
     Dates: start: 20110711
  4. VITAMIN TAB [Concomitant]
     Route: 048

REACTIONS (1)
  - HYPERSENSITIVITY [None]
